FAERS Safety Report 9924618 (Version 3)
Quarter: 2014Q1

REPORT INFORMATION
  Report Type: Spontaneous
  Country: DE (occurrence: None)
  Receive Date: 20140220
  Receipt Date: 20140321
  Transmission Date: 20141002
  Serious: Yes (Hospitalization)
  Sender: FDA-Public Use
  Company Number: 2014-000349

PATIENT
  Age: 43 Year
  Sex: Female

DRUGS (8)
  1. EMSELEX [Concomitant]
  2. FINGOLIMOD [Suspect]
     Indication: MULTIPLE SCLEROSIS
     Route: 048
     Dates: start: 201310, end: 201401
  3. TIZANIDINE HYDROCHLORIDE [Suspect]
     Indication: MUSCLE SPASTICITY
     Route: 048
     Dates: start: 201310, end: 201401
  4. FAMPRIDINE [Concomitant]
  5. LYRICA [Concomitant]
  6. URBASON [Concomitant]
  7. NSAID^S [Concomitant]
  8. CARBAMAZEPINE (CARBAMAZEPINE) [Suspect]
     Indication: CONVULSION
     Route: 048

REACTIONS (4)
  - Drug-induced liver injury [None]
  - Alanine aminotransferase increased [None]
  - Gamma-glutamyltransferase increased [None]
  - Hepatotoxicity [None]
